FAERS Safety Report 4529391-8 (Version None)
Quarter: 2004Q4

REPORT INFORMATION
  Report Type: 
  Country: None (occurrence: None)
  Receive Date: 20041214
  Receipt Date: 20041201
  Transmission Date: 20050328
  Serious: No
  Sender: FDA-Public Use
  Company Number: 2004GB02689

PATIENT
  Age: 32 Year
  Sex: Female

DRUGS (3)
  1. SEROQUEL [Suspect]
     Indication: BIPOLAR DISORDER
     Dosage: 150 MG DAILY PO
     Route: 048
     Dates: start: 20011101
  2. LUSTRAL [Suspect]
     Indication: DEPRESSION
     Dosage: 200 MG DAILY PO
     Route: 048
     Dates: start: 20030601
  3. LUSTRAL [Suspect]
     Indication: PSYCHOTIC DISORDER
     Dosage: 200 MG DAILY PO
     Route: 048
     Dates: start: 20030601

REACTIONS (2)
  - DRUG EXPOSURE DURING PREGNANCY [None]
  - ECTOPIC PREGNANCY [None]
